FAERS Safety Report 13694474 (Version 1)
Quarter: 2017Q2

REPORT INFORMATION
  Report Type: Spontaneous
  Country: IT (occurrence: IT)
  Receive Date: 20170627
  Receipt Date: 20170627
  Transmission Date: 20170830
  Serious: Yes (Hospitalization)
  Sender: FDA-Public Use
  Company Number: IT-BAYER-2017-118999

PATIENT
  Age: 63 Year
  Sex: Male

DRUGS (2)
  1. SODIUM HYPOCHLORITE [Suspect]
     Active Substance: SODIUM HYPOCHLORITE
     Dosage: 1/2 GLASS, ONCE
  2. CARDIOASPIRIN 100 MG [Suspect]
     Active Substance: ASPIRIN
     Indication: DRUG USE DISORDER
     Dosage: 3000 MG, ONCE
     Route: 048

REACTIONS (3)
  - Poisoning [Recovered/Resolved]
  - Drug use disorder [Recovered/Resolved]
  - Intentional self-injury [Recovered/Resolved]

NARRATIVE: CASE EVENT DATE: 20170611
